FAERS Safety Report 9376903 (Version 1)
Quarter: 2013Q3

REPORT INFORMATION
  Report Type: Report from Study
  Country: CA (occurrence: CA)
  Receive Date: 20130701
  Receipt Date: 20130701
  Transmission Date: 20140515
  Serious: Yes (Other)
  Sender: FDA-Public Use
  Company Number: CA-JNJFOC-20130616010

PATIENT
  Sex: Female
  Weight: 56 kg

DRUGS (9)
  1. REMICADE [Suspect]
     Indication: CROHN^S DISEASE
     Route: 042
     Dates: start: 20110110
  2. SPIRIVA [Concomitant]
     Route: 065
  3. SYMBICORT [Concomitant]
     Route: 065
  4. VITAMIN B12 [Concomitant]
     Route: 050
  5. ELAVIL [Concomitant]
     Route: 065
  6. ISONIAZIDE [Concomitant]
     Route: 065
  7. SYNTHROID [Concomitant]
     Route: 065
  8. ZOPICLONE [Concomitant]
     Route: 065
  9. VENTOLIN [Concomitant]
     Route: 065

REACTIONS (1)
  - Chest discomfort [Unknown]
